FAERS Safety Report 16155544 (Version 2)
Quarter: 2019Q2

REPORT INFORMATION
  Report Type: Spontaneous
  Country: US (occurrence: US)
  Receive Date: 20190404
  Receipt Date: 20190425
  Transmission Date: 20190711
  Serious: No
  Sender: FDA-Public Use
  Company Number: US-CELGENEUS-USA-20190310515

PATIENT
  Sex: Female

DRUGS (1)
  1. OTEZLA [Suspect]
     Active Substance: APREMILAST
     Indication: PSORIASIS
     Dosage: AM AND PM
     Route: 048
     Dates: start: 201902, end: 201902

REACTIONS (3)
  - Anxiety [Not Recovered/Not Resolved]
  - Acne [Not Recovered/Not Resolved]
  - Adverse drug reaction [Unknown]

NARRATIVE: CASE EVENT DATE: 2019
